FAERS Safety Report 14887223 (Version 1)
Quarter: 2018Q2

REPORT INFORMATION
  Report Type: Spontaneous
  Country: US (occurrence: US)
  Receive Date: 20180513
  Receipt Date: 20180513
  Transmission Date: 20180711
  Serious: No
  Sender: FDA-Public Use
  Company Number: US-JNJFOC-20180425791

PATIENT
  Age: 87 Year
  Sex: Female
  Weight: 59.42 kg

DRUGS (2)
  1. CHILDRENS MOTRIN [Suspect]
     Active Substance: IBUPROFEN
     Route: 048
  2. CHILDRENS MOTRIN [Suspect]
     Active Substance: IBUPROFEN
     Indication: PAIN MANAGEMENT
     Route: 048
     Dates: start: 20180417, end: 20180418

REACTIONS (1)
  - Drug administered to patient of inappropriate age [Unknown]
